FAERS Safety Report 4926361-2 (Version None)
Quarter: 2006Q1

REPORT INFORMATION
  Report Type: 
  Country: None (occurrence: None)
  Receive Date: 20060228
  Receipt Date: 20051104
  Transmission Date: 20060701
  Serious: No
  Sender: FDA-Public Use
  Company Number: US-GLAXOSMITHKLINE-A0580937A

PATIENT
  Age: 47 Year
  Sex: Female

DRUGS (9)
  1. LAMICTAL [Suspect]
     Indication: BIPOLAR DISORDER
     Dosage: 200MG PER DAY
     Route: 048
     Dates: start: 20050901
  2. GABITRIL [Concomitant]
  3. PROGERIL [Concomitant]
     Route: 065
  4. ENALAPRIL [Concomitant]
  5. ESTROGEN [Concomitant]
  6. DETROL [Concomitant]
  7. NEXIUM [Concomitant]
  8. NAPROXEN [Concomitant]
     Route: 065
  9. UNKNOWN MEDICATION [Concomitant]
     Route: 065

REACTIONS (1)
  - RASH [None]
